FAERS Safety Report 18785813 (Version 1)
Quarter: 2021Q1

REPORT INFORMATION
  Report Type: Report from Study
  Country: US (occurrence: US)
  Receive Date: 20210125
  Receipt Date: 20210125
  Transmission Date: 20210419
  Serious: Yes (Other)
  Sender: FDA-Public Use
  Company Number: US-TAKEDA-US202018380

PATIENT
  Sex: Female

DRUGS (2)
  1. CUVITRU [Suspect]
     Active Substance: HUMAN IMMUNOGLOBULIN G
     Indication: PRIMARY IMMUNODEFICIENCY SYNDROME
     Dosage: 13 GRAM
     Route: 065
  2. HUMAN NORMAL IMMUNOGLOBULIN; LIQUID [Suspect]
     Active Substance: HUMAN IMMUNOGLOBULIN G
     Indication: PRIMARY IMMUNODEFICIENCY SYNDROME
     Dosage: UNK, UNKNOWN
     Route: 042

REACTIONS (6)
  - Seizure [Unknown]
  - Vein disorder [Unknown]
  - Poor venous access [Unknown]
  - Allergy to vaccine [Unknown]
  - Sinusitis [Unknown]
  - Brain neoplasm [Unknown]
